FAERS Safety Report 18980720 (Version 1)
Quarter: 2021Q1

REPORT INFORMATION
  Report Type: Spontaneous
  Country: US (occurrence: US)
  Receive Date: 20210308
  Receipt Date: 20210308
  Transmission Date: 20210420
  Serious: Yes (Other)
  Sender: FDA-Public Use
  Company Number: US-SUNOVION-2021SUN000686

PATIENT
  Sex: Female

DRUGS (1)
  1. BROVANA [Suspect]
     Active Substance: ARFORMOTEROL TARTRATE
     Dosage: 15 MCG, BID
     Route: 055

REACTIONS (3)
  - Arthritis [Unknown]
  - Parkinson^s disease [Unknown]
  - Optic ischaemic neuropathy [Unknown]
